FAERS Safety Report 12726320 (Version 1)
Quarter: 2016Q3

REPORT INFORMATION
  Report Type: Spontaneous
  Country: US (occurrence: US)
  Receive Date: 20160908
  Receipt Date: 20160908
  Transmission Date: 20161109
  Serious: No
  Sender: FDA-Public Use
  Company Number: US-ASTRAZENECA-2016SE67015

PATIENT
  Age: 21616 Day
  Sex: Female
  Weight: 49.9 kg

DRUGS (1)
  1. LYNPARZA [Suspect]
     Active Substance: OLAPARIB
     Indication: OVARIAN CANCER
     Dosage: 8 CAPSULES TWICE A DAY OR 800 MG DAILY
     Route: 048
     Dates: start: 20160613, end: 20160616

REACTIONS (2)
  - Rash [Unknown]
  - Vomiting [Unknown]

NARRATIVE: CASE EVENT DATE: 20160616
